FAERS Safety Report 8816116 (Version 1)
Quarter: 2012Q4

REPORT INFORMATION
  Report Type: 
  Country: US (occurrence: US)
  Receive Date: 20120929
  Receipt Date: 20120929
  Transmission Date: 20130627
  Serious: Yes (Death)
  Sender: FDA-Public Use
  Company Number: US-B.I. PHARMACEUTICALS,INC./RIDGEFIELD-2012-EU-04876GD

PATIENT
  Age: 35 Year

DRUGS (3)
  1. CLONIDINE [Suspect]
     Route: 048
  2. VERAPAMIL [Suspect]
     Route: 048
  3. METOPROLOL [Suspect]
     Route: 048

REACTIONS (1)
  - Completed suicide [Fatal]
